FAERS Safety Report 9464351 (Version 2)
Quarter: 2013Q3

REPORT INFORMATION
  Report Type: Spontaneous
  Country: US (occurrence: US)
  Receive Date: 20130819
  Receipt Date: 20130909
  Transmission Date: 20140515
  Serious: Yes (Hospitalization)
  Sender: FDA-Public Use
  Company Number: US-GILEAD-2013-0081444

PATIENT
  Sex: Female

DRUGS (2)
  1. LETAIRIS [Suspect]
     Indication: PULMONARY HYPERTENSION
     Dosage: 5 MG, QD
     Route: 048
     Dates: start: 20130115
  2. ADCIRCA [Concomitant]

REACTIONS (10)
  - Breast cancer [Unknown]
  - Cardiac failure congestive [Unknown]
  - Dehydration [Unknown]
  - Syncope [Unknown]
  - Fluid retention [Unknown]
  - Oedema [Unknown]
  - Nausea [Unknown]
  - Vomiting [Unknown]
  - Packed red blood cell transfusion [Unknown]
  - Bilevel positive airway pressure [Unknown]
